FAERS Safety Report 22798495 (Version 2)
Quarter: 2023Q4

REPORT INFORMATION
  Report Type: Report from Study
  Country: IE (occurrence: None)
  Receive Date: 20230808
  Receipt Date: 20231121
  Transmission Date: 20240109
  Serious: Yes (Death)
  Sender: FDA-Public Use
  Company Number: 2022A315402

PATIENT
  Age: 28659 Day
  Sex: Male

DRUGS (15)
  1. FASENRA [Suspect]
     Active Substance: BENRALIZUMAB
     Indication: Asthma
     Dosage: 30.0MG UNKNOWN
     Route: 058
     Dates: start: 20220216
  2. SINGULAIR [Concomitant]
     Active Substance: MONTELUKAST SODIUM
  3. NEBIVOLOL [Concomitant]
     Active Substance: NEBIVOLOL
  4. OMEPRAZOLE [Concomitant]
     Active Substance: OMEPRAZOLE
  5. VALPROATE SODIUM [Concomitant]
     Active Substance: VALPROATE SODIUM
  6. CHOLECALCIFEROL [Concomitant]
     Active Substance: CHOLECALCIFEROL
  7. APIXABAN [Concomitant]
     Active Substance: APIXABAN
  8. ASPIRIN [Concomitant]
     Active Substance: ASPIRIN
  9. ATORVASTATIN CALCIUM [Concomitant]
     Active Substance: ATORVASTATIN CALCIUM
  10. AZITHROMYCIN [Concomitant]
     Active Substance: AZITHROMYCIN
  11. TRILEGY [Concomitant]
  12. LISINOPRIL [Concomitant]
     Active Substance: LISINOPRIL
  13. GLICLAZIDE [Concomitant]
     Active Substance: GLICLAZIDE
  14. ISOMEL [Concomitant]
  15. FINASTRIDINE [Concomitant]

REACTIONS (3)
  - Pancreatic carcinoma [Fatal]
  - Product dose omission issue [Unknown]
  - Product prescribing issue [Unknown]

NARRATIVE: CASE EVENT DATE: 20220907
